FAERS Safety Report 7326594-4 (Version None)
Quarter: 2011Q1

REPORT INFORMATION
  Report Type: 
  Country: None (occurrence: None)
  Receive Date: 20110302
  Receipt Date: 20110216
  Transmission Date: 20110831
  Serious: Yes (Death, Hospitalization)
  Sender: FDA-Public Use
  Company Number: US-ALEXION-A201100046

PATIENT
  Sex: Male

DRUGS (9)
  1. TRIAMTERENE AND HYDROCHLOROTHIAZID [Concomitant]
     Indication: BLOOD PRESSURE
     Dosage: 37.5/25, QD
     Route: 048
  2. GABAPENTIN [Concomitant]
     Dosage: 300 MG, TID
     Route: 048
  3. NADOLOL [Concomitant]
     Indication: BLOOD PRESSURE
     Dosage: 120 MG, BID
     Route: 048
  4. SOLIRIS [Suspect]
     Indication: PAROXYSMAL NOCTURNAL HAEMOGLOBINURIA
     Dosage: 900 MG, Q2W
     Route: 042
     Dates: end: 20101129
  5. DIOVAN [Concomitant]
     Indication: BLOOD PRESSURE
     Dosage: 160 MG, BID
     Route: 048
  6. POTASSIUM CHLORIDE [Concomitant]
     Indication: HYPOKALAEMIA
     Dosage: 20 MEQ, BID
     Route: 048
  7. FOLIC ACID [Concomitant]
     Indication: ANAEMIA
     Dosage: 2 MG, QD
     Route: 048
  8. FENTANYL                           /00174602/ [Concomitant]
     Indication: PAIN
     Dosage: 75 MCG, Q72HR
     Route: 062
  9. PREDNISONE TAB [Concomitant]
     Indication: PLATELET COUNT DECREASED
     Dosage: 40 MG, QD
     Route: 048

REACTIONS (10)
  - DEPRESSED LEVEL OF CONSCIOUSNESS [None]
  - PAROXYSMAL NOCTURNAL HAEMOGLOBINURIA [None]
  - HYPOTENSION [None]
  - HYPERTENSION [None]
  - CHEST PAIN [None]
  - RENAL FAILURE ACUTE [None]
  - PYREXIA [None]
  - SEPSIS [None]
  - CONDITION AGGRAVATED [None]
  - MENTAL STATUS CHANGES [None]
